FAERS Safety Report 12412279 (Version 1)
Quarter: 2016Q2

REPORT INFORMATION
  Report Type: Report from Study
  Country: US (occurrence: US)
  Receive Date: 20160527
  Receipt Date: 20160527
  Transmission Date: 20160815
  Serious: Yes (Other)
  Sender: FDA-Public Use
  Company Number: US-ELI_LILLY_AND_COMPANY-US201605002248

PATIENT
  Sex: Female

DRUGS (8)
  1. CYMBALTA [Suspect]
     Active Substance: DULOXETINE HYDROCHLORIDE
     Indication: DEPRESSION
  2. CYMBALTA [Suspect]
     Active Substance: DULOXETINE HYDROCHLORIDE
     Indication: MYALGIA
  3. CYMBALTA [Suspect]
     Active Substance: DULOXETINE HYDROCHLORIDE
     Indication: DEPRESSION
     Dosage: 30 MG, UNKNOWN
     Route: 065
     Dates: start: 20160517
  4. CYMBALTA [Suspect]
     Active Substance: DULOXETINE HYDROCHLORIDE
     Indication: BONE PAIN
  5. CYMBALTA [Suspect]
     Active Substance: DULOXETINE HYDROCHLORIDE
     Indication: FIBROMYALGIA
     Dosage: 60 MG, UNKNOWN
     Route: 065
     Dates: start: 2008
  6. CYMBALTA [Suspect]
     Active Substance: DULOXETINE HYDROCHLORIDE
     Indication: BONE PAIN
     Dosage: 60 MG, OTHER - EVERY OTHER DAY
     Route: 065
     Dates: start: 20160423
  7. CYMBALTA [Suspect]
     Active Substance: DULOXETINE HYDROCHLORIDE
     Indication: MYALGIA
     Dosage: 30 MG, OTHER - EVERY OTHER DAY
     Route: 065
     Dates: start: 20160507, end: 20160521
  8. CYMBALTA [Suspect]
     Active Substance: DULOXETINE HYDROCHLORIDE
     Indication: FIBROMYALGIA
     Dosage: UNK, UNKNOWN
     Route: 065

REACTIONS (23)
  - Tremor [Unknown]
  - Personality disorder [Unknown]
  - Influenza [Unknown]
  - Nausea [Unknown]
  - Central nervous system lesion [Unknown]
  - Anxiety [Unknown]
  - Immune system disorder [Unknown]
  - Suicidal ideation [Unknown]
  - Mental disorder [Unknown]
  - Skin burning sensation [Unknown]
  - Drug withdrawal syndrome [Unknown]
  - Urticaria [Unknown]
  - Feeling abnormal [Unknown]
  - Mood swings [Unknown]
  - Paraesthesia [Unknown]
  - Headache [Unknown]
  - Fatigue [Unknown]
  - Burning sensation [Unknown]
  - Dysstasia [Unknown]
  - Staphylococcal infection [Unknown]
  - Dizziness [Unknown]
  - Migraine [Unknown]
  - Drug ineffective [Unknown]
